FAERS Safety Report 4666375-3 (Version None)
Quarter: 2005Q2

REPORT INFORMATION
  Report Type: 
  Country: None (occurrence: None)
  Receive Date: 20050519
  Receipt Date: 20050512
  Transmission Date: 20051028
  Serious: Yes (Other)
  Sender: FDA-Public Use
  Company Number: US-BRISTOL-MYERS SQUIBB COMPANY-12967063

PATIENT
  Sex: Male

DRUGS (3)
  1. ERBITUX [Suspect]
     Dosage: LOAD DSOE 800 MG/M2, THEN 3 INFUSIONS AT NORMAL DOSE. THERAPY HELD FOR 1 WEEK.
     Route: 042
  2. CISPLATIN [Concomitant]
     Dosage: HELD FOR 1 WEEK
  3. RADIATION THERAPY [Concomitant]

REACTIONS (4)
  - BLOOD VISCOSITY INCREASED [None]
  - CERVICAL SPINAL STENOSIS [None]
  - HYPOAESTHESIA [None]
  - MOVEMENT DISORDER [None]
